FAERS Safety Report 5036775-0 (Version None)
Quarter: 2006Q2

REPORT INFORMATION
  Report Type: 
  Country: None (occurrence: None)
  Receive Date: 20060601
  Receipt Date: 20050606
  Transmission Date: 20061013
  Serious: Yes (Hospitalization)
  Sender: FDA-Public Use
  Company Number: 2005US000659

PATIENT
  Age: 31 Year
  Sex: Female

DRUGS (1)
  1. PROGRAF [Suspect]
     Indication: PROPHYLAXIS AGAINST TRANSPLANT REJECTION
     Dosage: 3.00 MG, BID

REACTIONS (4)
  - DRUG LEVEL DECREASED [None]
  - LIVER TRANSPLANT REJECTION [None]
  - PNEUMONIA [None]
  - VIRAL INFECTION [None]
